FAERS Safety Report 7682497-7 (Version None)
Quarter: 2011Q3

REPORT INFORMATION
  Report Type: 
  Country: None (occurrence: None)
  Receive Date: 20110815
  Receipt Date: 20110803
  Transmission Date: 20111222
  Serious: Yes (Other)
  Sender: FDA-Public Use
  Company Number: PHHY2011JP53359

PATIENT
  Age: 77 Year
  Sex: Male

DRUGS (3)
  1. ZOMETA [Suspect]
     Indication: MULTIPLE MYELOMA
     Dosage: 4 MG, UNK
     Route: 042
     Dates: start: 20071001
  2. MELPHALAN HYDROCHLORIDE [Concomitant]
  3. PREDNISOLONE [Concomitant]

REACTIONS (5)
  - GINGIVAL ERYTHEMA [None]
  - EXPOSED BONE IN JAW [None]
  - OSTEONECROSIS OF JAW [None]
  - DEVICE FAILURE [None]
  - GINGIVAL SWELLING [None]
